FAERS Safety Report 16063021 (Version 1)
Quarter: 2019Q1

REPORT INFORMATION
  Report Type: Spontaneous
  Country: CH (occurrence: CH)
  Receive Date: 20190312
  Receipt Date: 20190312
  Transmission Date: 20190418
  Serious: Yes (Hospitalization)
  Sender: FDA-Public Use
  Company Number: CH-AKORN PHARMACEUTICALS-2019AKN00398

PATIENT
  Age: 68 Year
  Sex: Male

DRUGS (5)
  1. RIFAMPIN. [Suspect]
     Active Substance: RIFAMPIN
     Indication: PULMONARY TUBERCULOSIS
     Dosage: 700 MG, 1X/DAY
     Route: 048
     Dates: start: 2008
  2. RIFAMPIN. [Suspect]
     Active Substance: RIFAMPIN
     Dosage: 900 MG, 1X/DAY FOR 2.5 DAYS, STOP 6 DAYS
     Route: 048
     Dates: start: 2017
  3. RIFAMPICIN FREE REGIMEN [Concomitant]
     Indication: PULMONARY TUBERCULOSIS
  4. DAPTOMYCIN. [Concomitant]
     Active Substance: DAPTOMYCIN
     Indication: ARTHRITIS INFECTIVE
     Dosage: UNK
     Dates: start: 2017
  5. RIFAMPIN. [Suspect]
     Active Substance: RIFAMPIN
     Dosage: 450 MG, 1X/DAY
     Route: 048
     Dates: start: 2017

REACTIONS (7)
  - Multiple organ dysfunction syndrome [Recovered/Resolved]
  - Acute kidney injury [Recovered/Resolved]
  - Hypersensitivity [Recovered/Resolved]
  - Acute hepatic failure [Recovered/Resolved]
  - Respiratory failure [Recovered/Resolved]
  - Haemolytic anaemia [Recovered/Resolved]
  - Alveolitis allergic [Recovered/Resolved]

NARRATIVE: CASE EVENT DATE: 2008
